FAERS Safety Report 20810317 (Version 2)
Quarter: 2022Q2

REPORT INFORMATION
  Report Type: Report from Study
  Country: CN (occurrence: CN)
  Receive Date: 20220510
  Receipt Date: 20220525
  Transmission Date: 20220721
  Serious: Yes (Hospitalization, Other)
  Sender: FDA-Public Use
  Company Number: CN-NOVARTISPH-NVSC2022CN105917

PATIENT
  Age: 56 Year
  Sex: Female

DRUGS (6)
  1. MEKINIST [Suspect]
     Active Substance: TRAMETINIB DIMETHYL SULFOXIDE
     Indication: Non-small cell lung cancer metastatic
     Dosage: 2 MG, QD
     Route: 048
     Dates: start: 20220419, end: 20220420
  2. BATROXOBIN [Suspect]
     Active Substance: BATROXOBIN
     Indication: Product used for unknown indication
     Dosage: UNK (2 U)
     Route: 042
     Dates: start: 20220422
  3. AMINOMETHYLBENZOIC ACID [Suspect]
     Active Substance: AMINOMETHYLBENZOIC ACID
     Indication: Haemostasis
     Dosage: 0.4 G, QD
     Route: 065
     Dates: start: 20220422, end: 20220428
  4. ETHAMSYLATE [Suspect]
     Active Substance: ETHAMSYLATE
     Indication: Haemostasis
     Dosage: 0.25 MG, QD
     Route: 065
     Dates: start: 20220422, end: 20220428
  5. BATROXOBIN [Suspect]
     Active Substance: BATROXOBIN
     Indication: Haemostasis
     Dosage: Q12H (1 KU)
     Route: 041
     Dates: start: 20220422, end: 20220428
  6. HYDROTALCITE [Suspect]
     Active Substance: HYDROTALCITE
     Indication: Appetite disorder
     Dosage: UNK
     Route: 065

REACTIONS (4)
  - Colon cancer [Unknown]
  - Diversion colitis [Recovered/Resolved]
  - Faeces discoloured [Unknown]
  - Pyrexia [Unknown]

NARRATIVE: CASE EVENT DATE: 20220421
